FAERS Safety Report 9601298 (Version 3)
Quarter: 2013Q4

REPORT INFORMATION
  Report Type: Spontaneous
  Country: NL (occurrence: NL)
  Receive Date: 20131006
  Receipt Date: 20131111
  Transmission Date: 20140711
  Serious: Yes (Other)
  Sender: FDA-Public Use
  Company Number: NL-009507513-1307NLD001484

PATIENT
  Sex: Female

DRUGS (1)
  1. SYNAPAUSE-E3 [Suspect]
     Indication: VULVOVAGINAL BURNING SENSATION
     Dosage: UNK
     Route: 067
     Dates: start: 20130613, end: 20130629

REACTIONS (7)
  - Skin cancer [Not Recovered/Not Resolved]
  - Intraocular pressure increased [Not Recovered/Not Resolved]
  - Pain in extremity [Not Recovered/Not Resolved]
  - Gait disturbance [Not Recovered/Not Resolved]
  - Ocular hyperaemia [Not Recovered/Not Resolved]
  - Diplopia [Not Recovered/Not Resolved]
  - Foreign body sensation in eyes [Not Recovered/Not Resolved]
